FAERS Safety Report 16601867 (Version 1)
Quarter: 2019Q3

REPORT INFORMATION
  Report Type: Spontaneous
  Country: US (occurrence: US)
  Receive Date: 20190719
  Receipt Date: 20190719
  Transmission Date: 20191004
  Serious: Yes (Life-Threatening, Other)
  Sender: FDA-Public Use
  Company Number: PHEH2019US030121

PATIENT

DRUGS (1)
  1. GLEEVEC [Suspect]
     Active Substance: IMATINIB MESYLATE
     Indication: NEUROFIBROMA
     Dosage: UNK
     Route: 065

REACTIONS (11)
  - Oesophageal compression [Unknown]
  - Seizure [Unknown]
  - Cervical cord compression [Unknown]
  - Neuralgia [Unknown]
  - Dysphagia [Unknown]
  - Cerebrovascular accident [Unknown]
  - Spinal cord compression [Unknown]
  - Obstructive airways disorder [Unknown]
  - Neurofibroma [Unknown]
  - Product use in unapproved indication [Unknown]
  - Hemiparesis [Unknown]
